FAERS Safety Report 8531646-7 (Version None)
Quarter: 2012Q3

REPORT INFORMATION
  Report Type: 
  Country: None (occurrence: None)
  Receive Date: 20120723
  Receipt Date: 20120720
  Transmission Date: 20120928
  Serious: Yes (Hospitalization)
  Sender: FDA-Public Use
  Company Number: BR-BAYER-2012-073213

PATIENT

DRUGS (1)
  1. ULTRAVIST 150 [Suspect]
     Dosage: 100 ML, UNK
     Route: 042
     Dates: start: 20120701

REACTIONS (1)
  - ADVERSE DRUG REACTION [None]
